FAERS Safety Report 6406982-0 (Version None)
Quarter: 2009Q4

REPORT INFORMATION
  Report Type: 
  Country: None (occurrence: None)
  Receive Date: 20091020
  Receipt Date: 20091015
  Transmission Date: 20100525
  Serious: Yes (Congenital Anomaly)
  Sender: FDA-Public Use
  Company Number: TR-ABBOTT-09P-161-0602902-00

PATIENT
  Age: 1 Day

DRUGS (1)
  1. VALPROATE SODIUM [Suspect]
     Indication: DRUG EXPOSURE DURING PREGNANCY
     Route: 064

REACTIONS (10)
  - CONGENITAL NOSE MALFORMATION [None]
  - DRUG EXPOSURE DURING PREGNANCY [None]
  - FOETAL ANTICONVULSANT SYNDROME [None]
  - FOOT DEFORMITY [None]
  - HYPERTELORISM OF ORBIT [None]
  - LOW SET EARS [None]
  - PATENT DUCTUS ARTERIOSUS [None]
  - PROMINENT EPICANTHAL FOLDS [None]
  - PULMONARY ARTERY STENOSIS CONGENITAL [None]
  - RETROGNATHIA [None]
